FAERS Safety Report 5193939-3 (Version None)
Quarter: 2006Q4

REPORT INFORMATION
  Report Type: 
  Country: None (occurrence: None)
  Receive Date: 20061228
  Receipt Date: 20061218
  Transmission Date: 20070319
  Serious: Yes (Other)
  Sender: FDA-Public Use
  Company Number: 2006UW28344

PATIENT
  Age: 53 Year
  Sex: Male

DRUGS (4)
  1. CRESTOR [Suspect]
     Indication: BLOOD CHOLESTEROL INCREASED
     Route: 048
     Dates: start: 20050101, end: 20060401
  2. CRESTOR [Suspect]
     Route: 048
     Dates: start: 20060601
  3. TWINRIX [Concomitant]
     Indication: HEPATITIS A
     Route: 030
     Dates: start: 20061101
  4. TWINRIX [Concomitant]
     Indication: HEPATITIS B
     Route: 030
     Dates: start: 20061101

REACTIONS (2)
  - MUSCLE DISORDER [None]
  - PANCYTOPENIA [None]
